FAERS Safety Report 8588895 (Version 4)
Quarter: 2012Q4

REPORT INFORMATION
  Report Type: 
  Country: US (occurrence: US)
  Receive Date: 20120531
  Receipt Date: 20121001
  Transmission Date: 20130627
  Serious: Yes (Life-Threatening, Hospitalization, Other)
  Sender: FDA-Public Use
  Company Number: PHEH2012US010787

PATIENT
  Age: 56 Year
  Sex: Female
  Weight: 54.42 kg

DRUGS (1)
  1. GILENYA [Suspect]
     Indication: MULTIPLE SCLEROSIS
     Dosage: 0.5 mg, QD
     Route: 048
     Dates: start: 20120523, end: 20120524

REACTIONS (17)
  - Cardiac arrest [Recovering/Resolving]
  - Chest discomfort [Recovering/Resolving]
  - Feeling abnormal [Unknown]
  - Hypotension [Unknown]
  - Malaise [Recovering/Resolving]
  - Sinus bradycardia [Unknown]
  - Palpitations [Recovered/Resolved]
  - Chest pain [Unknown]
  - Atrioventricular dissociation [Unknown]
  - Nodal rhythm [Unknown]
  - Aspartate aminotransferase increased [Unknown]
  - Alanine aminotransferase increased [Unknown]
  - White blood cell count decreased [Unknown]
  - Headache [Unknown]
  - Dizziness [Unknown]
  - Dyspnoea [Unknown]
  - Asthenia [Unknown]
